FAERS Safety Report 9551126 (Version 1)
Quarter: 2013Q3

REPORT INFORMATION
  Report Type: Spontaneous
  Country: US (occurrence: US)
  Receive Date: 20130925
  Receipt Date: 20130925
  Transmission Date: 20140515
  Serious: No
  Sender: FDA-Public Use
  Company Number: US-BIOGENIDEC-2013BI090149

PATIENT
  Age: 14 Year
  Sex: Female

DRUGS (2)
  1. AVONEX [Suspect]
     Indication: MULTIPLE SCLEROSIS
     Route: 030
     Dates: start: 20110621
  2. AVONEX [Suspect]
     Indication: MULTIPLE SCLEROSIS
     Route: 030
     Dates: start: 20130529

REACTIONS (5)
  - Abdominal pain upper [Unknown]
  - Oropharyngeal pain [Recovered/Resolved]
  - Infectious mononucleosis [Unknown]
  - Pyrexia [Not Recovered/Not Resolved]
  - Headache [Unknown]
